FAERS Safety Report 7864977-4 (Version None)
Quarter: 2011Q4

REPORT INFORMATION
  Report Type: 
  Country: None (occurrence: None)
  Receive Date: 20111028
  Receipt Date: 20111026
  Transmission Date: 20120403
  Serious: No
  Sender: FDA-Public Use
  Company Number: US-BAYER-2011-104589

PATIENT
  Age: 86 Year
  Sex: Male

DRUGS (3)
  1. ASPIRIN [Concomitant]
  2. NEXAVAR [Suspect]
     Indication: HEPATIC NEOPLASM MALIGNANT
     Dosage: 400 MG, BID
     Route: 048
     Dates: start: 20110929
  3. HYDROXYCHLOROQUINE SULFATE [Concomitant]
     Dosage: UNK MG, UNK

REACTIONS (5)
  - MYALGIA [None]
  - HEADACHE [None]
  - NAUSEA [None]
  - VOMITING [None]
  - DIARRHOEA [None]
